FAERS Safety Report 7123726-8 (Version None)
Quarter: 2010Q4

REPORT INFORMATION
  Report Type: 
  Country: None (occurrence: None)
  Receive Date: 20101125
  Receipt Date: 20101112
  Transmission Date: 20110411
  Serious: Yes (Other)
  Sender: FDA-Public Use
  Company Number: PHHY2010BR77234

PATIENT
  Sex: Male

DRUGS (1)
  1. AFINITOR [Suspect]
     Route: 048

REACTIONS (1)
  - HERPES OESOPHAGITIS [None]
